FAERS Safety Report 23276594 (Version 1)
Quarter: 2023Q4

REPORT INFORMATION
  Report Type: Spontaneous
  Country: CN (occurrence: CN)
  Receive Date: 20231208
  Receipt Date: 20231208
  Transmission Date: 20240110
  Serious: Yes (Other)
  Sender: FDA-Public Use
  Company Number: CN-PFIZER INC-PV202300198570

PATIENT
  Age: 33 Year
  Sex: Male
  Weight: 60 kg

DRUGS (3)
  1. METHOTREXATE SODIUM [Suspect]
     Active Substance: METHOTREXATE SODIUM
     Indication: Chemotherapy
     Dosage: 5000 MG, 1X/DAY
     Route: 041
     Dates: start: 20231107, end: 20231107
  2. LEUCOVORIN CALCIUM [Concomitant]
     Active Substance: LEUCOVORIN CALCIUM
     Route: 030
  3. LEUCOVORIN CALCIUM [Concomitant]
     Active Substance: LEUCOVORIN CALCIUM

REACTIONS (2)
  - Mouth ulceration [Recovering/Resolving]
  - Pharyngeal ulceration [Recovering/Resolving]

NARRATIVE: CASE EVENT DATE: 20231113
